FAERS Safety Report 7303253-5 (Version None)
Quarter: 2011Q1

REPORT INFORMATION
  Report Type: 
  Country: None (occurrence: None)
  Receive Date: 20110221
  Receipt Date: 20100105
  Transmission Date: 20110831
  Serious: No
  Sender: FDA-Public Use
  Company Number: 2010BI000409

PATIENT
  Age: 59 Year
  Sex: Female

DRUGS (5)
  1. AVONEX [Concomitant]
     Route: 030
     Dates: start: 19961201, end: 20070101
  2. AVONEX [Concomitant]
     Route: 030
  3. TYSABRI [Suspect]
     Route: 042
     Dates: start: 20101112
  4. TYSABRI [Suspect]
     Indication: MULTIPLE SCLEROSIS
     Route: 042
     Dates: start: 20070220, end: 20090609
  5. AVONEX [Concomitant]
     Indication: MULTIPLE SCLEROSIS
     Route: 030
     Dates: start: 20091001, end: 20091228

REACTIONS (3)
  - FOOT FRACTURE [None]
  - GAIT DISTURBANCE [None]
  - FALL [None]
